FAERS Safety Report 12252915 (Version 3)
Quarter: 2016Q2

REPORT INFORMATION
  Report Type: Spontaneous
  Country: FR (occurrence: FR)
  Receive Date: 20160411
  Receipt Date: 20160512
  Transmission Date: 20160815
  Serious: Yes (Hospitalization)
  Sender: FDA-Public Use
  Company Number: FR-PFIZER INC-2016193102

PATIENT
  Age: 39 Year
  Sex: Female

DRUGS (18)
  1. RELPAX [Suspect]
     Active Substance: ELETRIPTAN HYDROBROMIDE
     Dosage: 20 DF, MONTHLY
     Route: 048
     Dates: start: 201512, end: 201512
  2. MAXALT [Suspect]
     Active Substance: RIZATRIPTAN BENZOATE
     Dosage: UNK, WEEKLY
     Route: 048
     Dates: start: 201310
  3. MAXALT [Suspect]
     Active Substance: RIZATRIPTAN BENZOATE
     Dosage: 2 DF, DAILY
     Route: 048
     Dates: start: 201601
  4. EPITOMAX [Concomitant]
     Active Substance: TOPIRAMATE
     Indication: HEADACHE
     Dosage: UNK
     Dates: start: 201310
  5. RELPAX [Suspect]
     Active Substance: ELETRIPTAN HYDROBROMIDE
     Dosage: 2-3 DF, MONTHLY
     Route: 048
     Dates: start: 201412
  6. PRONTALGINE [Suspect]
     Active Substance: ACETAMINOPHEN\AMOBARBITAL\CAFFEINE\CODEINE PHOSPHATE
     Dosage: 17 DF, WEEKLY
     Route: 048
     Dates: start: 201107
  7. PRONTALGINE [Suspect]
     Active Substance: ACETAMINOPHEN\AMOBARBITAL\CAFFEINE\CODEINE PHOSPHATE
     Dosage: 6 DF, DAILY
     Route: 048
     Dates: start: 201512
  8. TENORMIN [Concomitant]
     Active Substance: ATENOLOL
     Indication: HEADACHE
     Dosage: UNK
     Dates: start: 201512, end: 201512
  9. RELPAX [Suspect]
     Active Substance: ELETRIPTAN HYDROBROMIDE
     Dosage: A FEW MONTHLY (IF NEEDED)
     Route: 048
     Dates: start: 201404
  10. PRONTALGINE [Suspect]
     Active Substance: ACETAMINOPHEN\AMOBARBITAL\CAFFEINE\CODEINE PHOSPHATE
     Indication: HEADACHE
     Dosage: UNK
     Route: 048
     Dates: start: 2008
  11. PRONTALGINE [Suspect]
     Active Substance: ACETAMINOPHEN\AMOBARBITAL\CAFFEINE\CODEINE PHOSPHATE
     Dosage: 6-8 DF, DAILY
     Route: 048
     Dates: start: 201601
  12. TENORMIN [Concomitant]
     Active Substance: ATENOLOL
     Dosage: UNK
     Dates: start: 201601
  13. PRONTALGINE [Suspect]
     Active Substance: ACETAMINOPHEN\AMOBARBITAL\CAFFEINE\CODEINE PHOSPHATE
     Dosage: 3-6 DF, DAILY
     Route: 048
     Dates: start: 201310
  14. MAXALT [Suspect]
     Active Substance: RIZATRIPTAN BENZOATE
     Dosage: 10 MG, AS NEEDED
     Route: 048
     Dates: start: 201512
  15. RELPAX [Suspect]
     Active Substance: ELETRIPTAN HYDROBROMIDE
     Indication: HEADACHE
     Dosage: UNK
     Route: 048
     Dates: start: 2013
  16. RELPAX [Suspect]
     Active Substance: ELETRIPTAN HYDROBROMIDE
     Dosage: UNK, WEEKLY
     Route: 048
     Dates: start: 201310
  17. MAXALT [Suspect]
     Active Substance: RIZATRIPTAN BENZOATE
     Dosage: 5 DF, MONTHLY
     Route: 048
     Dates: start: 201107
  18. MAXALT [Suspect]
     Active Substance: RIZATRIPTAN BENZOATE
     Indication: HEADACHE
     Dosage: UNK
     Route: 048
     Dates: start: 2010

REACTIONS (1)
  - Drug abuse [Unknown]

NARRATIVE: CASE EVENT DATE: 2011
